FAERS Safety Report 5753893-X (Version None)
Quarter: 2008Q2

REPORT INFORMATION
  Report Type: 
  Country: None (occurrence: None)
  Receive Date: 20080530
  Receipt Date: 20080523
  Transmission Date: 20081010
  Serious: Yes (Hospitalization)
  Sender: FDA-Public Use
  Company Number: B0518584A

PATIENT
  Age: 51 Year
  Sex: Female
  Weight: 52 kg

DRUGS (2)
  1. LAPATINIB [Suspect]
     Dosage: 1250MG PER DAY
     Route: 048
     Dates: start: 20080410
  2. CAPECITABINE [Suspect]
     Dosage: 2500MG PER DAY
     Route: 048
     Dates: start: 20080219

REACTIONS (3)
  - CELLULITIS [None]
  - LOCALISED INFECTION [None]
  - PYREXIA [None]
